FAERS Safety Report 5045176-0 (Version None)
Quarter: 2006Q3

REPORT INFORMATION
  Report Type: 
  Country: None (occurrence: None)
  Receive Date: 20060705
  Receipt Date: 20060612
  Transmission Date: 20061208
  Serious: Yes (Hospitalization)
  Sender: FDA-Public Use
  Company Number: US200604002330

PATIENT
  Age: 86 Year
  Sex: Female

DRUGS (3)
  1. FORTEO [Suspect]
     Indication: OSTEOPOROSIS
     Dates: start: 20050601, end: 20060228
  2. FORTEO [Suspect]
     Indication: OSTEOPOROSIS
     Dates: start: 20060401
  3. FORTEO [Concomitant]

REACTIONS (6)
  - ARTHRALGIA [None]
  - FALL [None]
  - JOINT RANGE OF MOTION DECREASED [None]
  - PELVIC FRACTURE [None]
  - PHARMACEUTICAL PRODUCT COMPLAINT [None]
  - UPPER LIMB FRACTURE [None]
